FAERS Safety Report 18644697 (Version 2)
Quarter: 2021Q1

REPORT INFORMATION
  Report Type: Spontaneous
  Country: US (occurrence: US)
  Receive Date: 20201221
  Receipt Date: 20210322
  Transmission Date: 20210419
  Serious: No
  Sender: FDA-Public Use
  Company Number: US-BIOHAVEN PHARMACEUTICALS-2020BHV00755

PATIENT
  Age: 50 Year
  Sex: Female
  Weight: 61.22 kg

DRUGS (3)
  1. NURTEC ODT [Suspect]
     Active Substance: RIMEGEPANT SULFATE
     Indication: MIGRAINE
     Dosage: 75 MG, AS NEEDED
     Route: 048
     Dates: start: 202008
  2. NURTEC ODT [Suspect]
     Active Substance: RIMEGEPANT SULFATE
     Indication: HEADACHE
  3. BOTOX [Concomitant]
     Active Substance: ONABOTULINUMTOXINA
     Dosage: UNK
     Dates: start: 202009

REACTIONS (8)
  - Headache [Unknown]
  - Dysarthria [Not Recovered/Not Resolved]
  - Therapeutic product effect incomplete [Not Recovered/Not Resolved]
  - Migraine [Not Recovered/Not Resolved]
  - Unevaluable event [Unknown]
  - Therapeutic response shortened [Not Recovered/Not Resolved]
  - Memory impairment [Unknown]
  - Nausea [Not Recovered/Not Resolved]

NARRATIVE: CASE EVENT DATE: 2020
